FAERS Safety Report 8264593-9 (Version None)
Quarter: 2012Q2

REPORT INFORMATION
  Report Type: 
  Country: None (occurrence: None)
  Receive Date: 20120406
  Receipt Date: 20120328
  Transmission Date: 20120825
  Serious: Yes (Other)
  Sender: FDA-Public Use
  Company Number: CA-UCBSA-047053

PATIENT
  Age: 49 Year
  Sex: Female
  Weight: 71.7 kg

DRUGS (10)
  1. CYMBALTA [Concomitant]
     Indication: DEPRESSION
     Route: 048
  2. FOLIC ACID [Concomitant]
  3. CIMZIA [Suspect]
     Indication: RHEUMATOID ARTHRITIS
     Route: 058
     Dates: start: 20110715
  4. CELEBREX [Concomitant]
     Indication: RHEUMATOID ARTHRITIS
     Route: 048
  5. VENTOLIN DS [Concomitant]
     Indication: ASTHMA
     Dosage: 2 PUFFS PER DOSE BY INH
     Route: 055
  6. IRON [Concomitant]
  7. PREVACID [Concomitant]
  8. CIMZIA [Suspect]
     Route: 058
     Dates: start: 20101201, end: 20110711
  9. METHOTREXATE [Concomitant]
     Indication: RHEUMATOID ARTHRITIS
     Route: 058
  10. PREDNISONE TAB [Concomitant]
     Indication: RHEUMATOID ARTHRITIS
     Route: 048

REACTIONS (2)
  - CARPAL TUNNEL SYNDROME [None]
  - PNEUMONIA [None]
